FAERS Safety Report 7021599-5 (Version None)
Quarter: 2010Q3

REPORT INFORMATION
  Report Type: 
  Country: None (occurrence: None)
  Receive Date: 20100928
  Receipt Date: 20100920
  Transmission Date: 20110219
  Serious: Yes (Hospitalization)
  Sender: FDA-Public Use
  Company Number: 1000016450

PATIENT
  Age: 68 Year
  Sex: Male
  Weight: 68 kg

DRUGS (8)
  1. MEMANTINE [Suspect]
     Dosage: 5 MG (5 MG, 1 IN 1 D), ORAL
     Route: 048
     Dates: start: 20100904, end: 20100911
  2. MEMANTINE [Suspect]
     Dosage: 10 MG (10 MG, 1 IN 1 D), ORAL
     Route: 048
     Dates: start: 20100912, end: 20100915
  3. GINKGO BILOBA LEAVE (GINKGO BILOBA LEAVE) [Concomitant]
  4. YINDENGNAOTONG [Concomitant]
  5. SHUXUETONG (SHUXUETONG) (SHUXUETONG) [Concomitant]
  6. GANGLIOSIDES (CEREBRAL CORTEX) (CEREBRAL CORTEX) [Concomitant]
  7. DANHONG (DANHONG (DANHONG) [Concomitant]
  8. ASPIRIN [Concomitant]

REACTIONS (2)
  - FAECAL INCONTINENCE [None]
  - URINARY INCONTINENCE [None]
